FAERS Safety Report 13910837 (Version 1)
Quarter: 2017Q3

REPORT INFORMATION
  Report Type: Spontaneous
  Country: US (occurrence: US)
  Receive Date: 20170828
  Receipt Date: 20170828
  Transmission Date: 20171127
  Serious: Yes (Hospitalization)
  Sender: FDA-Public Use
  Company Number: US-PFIZER INC-2017367527

PATIENT
  Age: 83 Year
  Sex: Female
  Weight: 62.59 kg

DRUGS (12)
  1. NOVOLOG [Concomitant]
     Active Substance: INSULIN ASPART
     Dosage: TAKE LIKE 7 UNITS IN THE MORNING AND 5 IN THE EVENING
  2. COREG [Concomitant]
     Active Substance: CARVEDILOL
     Indication: CARDIAC DISORDER
  3. COUMADIN [Concomitant]
     Active Substance: WARFARIN SODIUM
     Indication: THROMBOSIS
  4. ALDACTONE [Concomitant]
     Active Substance: SPIRONOLACTONE
  5. LYRICA [Suspect]
     Active Substance: PREGABALIN
     Indication: NERVE INJURY
     Dosage: 75 MG, CAPSULE, ONCE IN THE EVENING
     Route: 048
     Dates: start: 20170808
  6. ADCIRCA [Concomitant]
     Active Substance: TADALAFIL
     Indication: LUNG DISORDER
  7. LASIX [Concomitant]
     Active Substance: FUROSEMIDE
     Indication: BLOOD PRESSURE ABNORMAL
  8. INSULIN [Concomitant]
     Active Substance: INSULIN NOS
     Indication: DIABETES MELLITUS
  9. IRON PILL [Concomitant]
     Active Substance: IRON
  10. SYNTHROID [Concomitant]
     Active Substance: LEVOTHYROXINE SODIUM
  11. COREG [Concomitant]
     Active Substance: CARVEDILOL
     Indication: BLOOD PRESSURE ABNORMAL
  12. COZAAR [Concomitant]
     Active Substance: LOSARTAN POTASSIUM

REACTIONS (4)
  - Dysstasia [Unknown]
  - Malaise [Unknown]
  - Muscle disorder [Unknown]
  - Asthenia [Unknown]

NARRATIVE: CASE EVENT DATE: 20170813
